FAERS Safety Report 7818918-6 (Version None)
Quarter: 2011Q4

REPORT INFORMATION
  Report Type: 
  Country: None (occurrence: None)
  Receive Date: 20111017
  Receipt Date: 20111017
  Transmission Date: 20120403
  Serious: Yes (Hospitalization)
  Sender: FDA-Public Use
  Company Number: None

PATIENT
  Sex: Male
  Weight: 67.9 kg

DRUGS (4)
  1. RITUXIMAB (MOAB C2B8 ANTI CD20, CHIMERIC) [Suspect]
     Dosage: 758 MG
  2. CYCLOPHOSPHAMIDE [Suspect]
     Dosage: 1212 MG
  3. CAMPATH [Suspect]
     Dosage: 60 MG
  4. PENTOSTATIN [Suspect]
     Dosage: 8 MG

REACTIONS (9)
  - FALL [None]
  - PLATELET COUNT DECREASED [None]
  - HAEMOGLOBIN DECREASED [None]
  - HYPOAESTHESIA [None]
  - FATIGUE [None]
  - GAIT DISTURBANCE [None]
  - DYSPNOEA [None]
  - MUSCULAR WEAKNESS [None]
  - BLOOD PRESSURE DECREASED [None]
